FAERS Safety Report 9282219 (Version 1)
Quarter: 2013Q2

REPORT INFORMATION
  Report Type: Spontaneous
  Country: US (occurrence: US)
  Receive Date: 20130510
  Receipt Date: 20130510
  Transmission Date: 20140414
  Serious: No
  Sender: FDA-Public Use
  Company Number: US-PFIZER INC-2013142736

PATIENT
  Age: 12 Year
  Sex: Male
  Weight: 40.82 kg

DRUGS (3)
  1. ADVIL COLD AND SINUS [Suspect]
     Indication: NASAL CONGESTION
     Dosage: 200/30 MG, ONCE DAILY
     Dates: start: 20130505, end: 20130506
  2. ALLEGRA [Concomitant]
     Indication: HYPERSENSITIVITY
     Dosage: UNK
  3. ZYRTEC [Concomitant]
     Indication: HYPERSENSITIVITY
     Dosage: UNK

REACTIONS (2)
  - Vision blurred [Not Recovered/Not Resolved]
  - Myopia [Not Recovered/Not Resolved]
